FAERS Safety Report 24433131 (Version 2)
Quarter: 2024Q4

REPORT INFORMATION
  Report Type: Spontaneous
  Country: GB (occurrence: GB)
  Receive Date: 20241014
  Receipt Date: 20241119
  Transmission Date: 20250115
  Serious: Yes (Other)
  Sender: MYLAN
  Company Number: GB-MYLANLABS-2024M1091921

PATIENT
  Sex: Male

DRUGS (3)
  1. CLOZARIL [Suspect]
     Active Substance: CLOZAPINE
     Indication: Schizophrenia
     Dosage: UNK, BID (50 MG IN MORNING AND 100 MG IN NIGHT)
     Route: 048
     Dates: start: 20201217
  2. AMISULPRIDE [Suspect]
     Active Substance: AMISULPRIDE
     Indication: Schizophrenia
     Dosage: 50 MILLIGRAM, QD (AT NIGHT)
     Route: 048
     Dates: start: 20210323
  3. SCOPOLAMINE HYDROBROMIDE [Concomitant]
     Active Substance: SCOPOLAMINE HYDROBROMIDE
     Indication: Salivary hypersecretion
     Dosage: 150 MILLIGRAM, PRN
     Route: 048
     Dates: start: 2020

REACTIONS (1)
  - Hyperprolactinaemia [Unknown]
